APPROVED DRUG PRODUCT: AVC
Active Ingredient: SULFANILAMIDE
Strength: 1.05GM
Dosage Form/Route: SUPPOSITORY;VAGINAL
Application: N006530 | Product #004
Applicant: PHARMOBEDIENT CONSULTING LLC
Approved: Jan 27, 1987 | RLD: No | RS: No | Type: DISCN